FAERS Safety Report 4930831-0 (Version None)
Quarter: 2006Q1

REPORT INFORMATION
  Report Type: 
  Country: None (occurrence: None)
  Receive Date: 20060227
  Receipt Date: 20060214
  Transmission Date: 20060701
  Serious: Yes (Hospitalization, Other)
  Sender: FDA-Public Use
  Company Number: 200610654GDS

PATIENT
  Sex: Male

DRUGS (7)
  1. CIPRO [Suspect]
     Indication: EJACULATION DISORDER
     Dosage: 1000 MG, TOTAL DAILY, ORAL
     Route: 048
  2. CIPRO [Suspect]
     Indication: HAEMORRHAGE
     Dosage: 1000 MG, TOTAL DAILY, ORAL
     Route: 048
  3. CIPRO [Suspect]
     Indication: TESTICULAR PAIN
     Dosage: 1000 MG, TOTAL DAILY, ORAL
     Route: 048
  4. GABAPENTIN [Concomitant]
  5. TOPIRAMATE [Concomitant]
  6. CLONAZEPAM [Concomitant]
  7. MORPHINE [Concomitant]

REACTIONS (8)
  - ASTHENIA [None]
  - CONFUSIONAL STATE [None]
  - FALL [None]
  - JOINT DISLOCATION [None]
  - MOVEMENT DISORDER [None]
  - NAUSEA [None]
  - PARALYSIS [None]
  - RIB FRACTURE [None]
